FAERS Safety Report 10029219 (Version 2)
Quarter: 2014Q1

REPORT INFORMATION
  Report Type: Spontaneous
  Country: US (occurrence: US)
  Receive Date: 20140321
  Receipt Date: 20140321
  Transmission Date: 20141002
  Serious: Yes (Disabling)
  Sender: FDA-Public Use
  Company Number: US-GE HEALTHCARE MEDICAL DIAGNOSTICS-OSCN-PR-0806S-0372

PATIENT
  Age: 23 Year
  Sex: Male

DRUGS (2)
  1. OMNISCAN [Suspect]
     Indication: RENAL MASS
     Route: 042
     Dates: start: 20020322, end: 20020322
  2. EPOETIN [Concomitant]

REACTIONS (1)
  - Nephrogenic systemic fibrosis [Recovering/Resolving]
